FAERS Safety Report 10843711 (Version 1)
Quarter: 2015Q1

REPORT INFORMATION
  Report Type: Spontaneous
  Country: US (occurrence: US)
  Receive Date: 20150220
  Receipt Date: 20150220
  Transmission Date: 20150721
  Serious: No
  Sender: FDA-Public Use
  Company Number: US-ABBVIE-14P-163-1289024-00

PATIENT
  Age: 37 Year
  Sex: Female

DRUGS (3)
  1. HUMIRA [Suspect]
     Active Substance: ADALIMUMAB
     Route: 058
     Dates: start: 20141001
  2. HUMIRA [Suspect]
     Active Substance: ADALIMUMAB
     Route: 058
     Dates: start: 20140917, end: 20140917
  3. HUMIRA [Suspect]
     Active Substance: ADALIMUMAB
     Indication: PSORIASIS
     Route: 058
     Dates: start: 20140910, end: 20140910

REACTIONS (4)
  - Erythema [Recovered/Resolved]
  - Injection site reaction [Unknown]
  - Pain [Recovered/Resolved]
  - Injection site papule [Recovered/Resolved]

NARRATIVE: CASE EVENT DATE: 2014
